FAERS Safety Report 4995266-3 (Version None)
Quarter: 2006Q2

REPORT INFORMATION
  Report Type: 
  Country: None (occurrence: None)
  Receive Date: 20060508
  Receipt Date: 20060117
  Transmission Date: 20061013
  Serious: Yes (Hospitalization, Other)
  Sender: FDA-Public Use
  Company Number: US-MERCK-0601USA02238

PATIENT
  Age: 65 Year
  Sex: Female
  Weight: 89 kg

DRUGS (20)
  1. VIOXX [Suspect]
     Indication: OSTEOARTHRITIS
     Route: 048
     Dates: start: 20001010, end: 20020225
  2. PLAVIX [Concomitant]
     Indication: CORONARY ARTERY DISEASE
     Route: 048
     Dates: start: 20030818
  3. PLAVIX [Concomitant]
     Indication: GASTROOESOPHAGEAL REFLUX DISEASE
     Route: 048
     Dates: start: 20030818
  4. CAPTOPRIL MSD [Concomitant]
     Route: 065
  5. ASPIRIN [Concomitant]
     Indication: CEREBROVASCULAR ACCIDENT PROPHYLAXIS
     Route: 048
     Dates: start: 20010901, end: 20021201
  6. CELEBREX [Concomitant]
     Route: 065
     Dates: start: 20000501, end: 20001001
  7. BEXTRA [Concomitant]
     Route: 065
     Dates: start: 20030801
  8. ATENOL [Concomitant]
     Route: 048
  9. LIPITOR [Concomitant]
     Indication: HYPERCHOLESTEROLAEMIA
     Route: 048
     Dates: start: 20001010
  10. AVALIDE [Concomitant]
     Route: 048
  11. GLUCOPHAGE [Concomitant]
     Indication: DIABETES MELLITUS NON-INSULIN-DEPENDENT
     Route: 048
  12. DIOVAN [Concomitant]
     Indication: HYPERTENSION
     Route: 065
     Dates: start: 19990318
  13. METOPROLOL [Concomitant]
     Indication: HYPERTENSION
     Route: 065
     Dates: start: 19990318
  14. CATAPRES [Concomitant]
     Indication: HYPERTENSION
     Route: 065
     Dates: start: 19990318
  15. TYLENOL (CAPLET) [Concomitant]
     Indication: OSTEOARTHRITIS
     Route: 065
     Dates: start: 20031010
  16. CAPOTEN [Concomitant]
     Route: 048
  17. CAPOTEN [Concomitant]
     Route: 048
  18. PREMPRO [Concomitant]
     Route: 048
  19. ARICEPT [Concomitant]
     Route: 048
  20. HYDROCODONE HYDROCHLORIDE [Concomitant]
     Route: 048

REACTIONS (24)
  - ABDOMINAL PAIN UPPER [None]
  - AGNOSIA [None]
  - ARTERIOSCLEROSIS [None]
  - BILIARY COLIC [None]
  - BLOOD PRESSURE SYSTOLIC INCREASED [None]
  - BRADYCARDIA [None]
  - CEREBROVASCULAR ACCIDENT [None]
  - CEREBROVASCULAR DISORDER [None]
  - CHOLECYSTITIS CHRONIC [None]
  - CHOLELITHIASIS [None]
  - CORONARY ARTERY DISEASE [None]
  - DEMENTIA ALZHEIMER'S TYPE [None]
  - GASTROOESOPHAGEAL REFLUX DISEASE [None]
  - HYPERCHOLESTEROLAEMIA [None]
  - LOSS OF CONSCIOUSNESS [None]
  - MENTAL STATUS CHANGES [None]
  - NECK PAIN [None]
  - OSTEOARTHRITIS [None]
  - PERSONALITY CHANGE [None]
  - POLYTRAUMATISM [None]
  - POSTOPERATIVE WOUND INFECTION [None]
  - SINUS ARREST [None]
  - TRANSIENT ISCHAEMIC ATTACK [None]
  - VOMITING [None]
